FAERS Safety Report 16111983 (Version 2)
Quarter: 2019Q3

REPORT INFORMATION
  Report Type: Spontaneous
  Country: US (occurrence: US)
  Receive Date: 20190325
  Receipt Date: 20190708
  Transmission Date: 20191004
  Serious: No
  Sender: FDA-Public Use
  Company Number: US-AVEDRO-AVE-2019-0006-AE

PATIENT
  Age: 26 Year
  Sex: Male
  Weight: 65.8 kg

DRUGS (9)
  1. PREDNISOLONE ACETATE. [Concomitant]
     Active Substance: PREDNISOLONE ACETATE
     Indication: ANTIINFLAMMATORY THERAPY
     Dosage: 1.0% 4 TIMES
     Route: 047
     Dates: start: 20181218, end: 20181218
  2. PHOTREXA VISCOUS [Suspect]
     Active Substance: RIBOFLAVIN 5^-PHOSPHATE SODIUM
     Indication: KERATOCONUS
     Route: 047
     Dates: start: 20181218, end: 20181218
  3. ALPRAZOLAM. [Concomitant]
     Active Substance: ALPRAZOLAM
     Indication: PRODUCT USED FOR UNKNOWN INDICATION
     Dosage: 0.25MG ONCE PRIOR TO THE PROCEDURE
     Route: 048
     Dates: start: 20181218, end: 20181218
  4. MOXIFLOXACIN. [Concomitant]
     Active Substance: MOXIFLOXACIN
     Indication: PROPHYLAXIS
     Dosage: 0.5% 4 TIMES
     Route: 047
     Dates: start: 20181218, end: 20181218
  5. PROPARACAINE [Concomitant]
     Active Substance: PROPARACAINE
     Dosage: 0.5% ONCE DURING THE PROCEDURE
     Route: 047
     Dates: start: 20181218, end: 20181218
  6. PROPARACAINE [Concomitant]
     Active Substance: PROPARACAINE
     Indication: PRODUCT USED FOR UNKNOWN INDICATION
     Dosage: 0.5% ONCE PRIOR TO THE PROCEDURE
     Route: 047
     Dates: start: 20181218, end: 20181218
  7. KXL SYSTEM [Suspect]
     Active Substance: DEVICE
     Indication: KERATOCONUS
     Route: 047
     Dates: start: 20181218, end: 20181218
  8. IBUPROFEN. [Concomitant]
     Active Substance: IBUPROFEN
     Indication: PRODUCT USED FOR UNKNOWN INDICATION
     Dosage: 800MG ONCE PRIOR TO THE PROCEDURE
     Route: 048
     Dates: start: 20181218, end: 20181218
  9. OFLOXACIN. [Concomitant]
     Active Substance: OFLOXACIN
     Indication: PRODUCT USED FOR UNKNOWN INDICATION
     Dosage: 3.0% ONCE UPON CONCLUSION OF THE PROCEDURE
     Route: 047
     Dates: start: 20181218, end: 20181218

REACTIONS (7)
  - Corneal striae [Not Recovered/Not Resolved]
  - Punctate keratitis [Unknown]
  - Corneal opacity [Not Recovered/Not Resolved]
  - Eye pain [Unknown]
  - Conjunctival hyperaemia [Recovered/Resolved]
  - Keratitis [Recovered/Resolved]
  - Visual impairment [Not Recovered/Not Resolved]

NARRATIVE: CASE EVENT DATE: 201812
